FAERS Safety Report 9677462 (Version 1)
Quarter: 2013Q4

REPORT INFORMATION
  Report Type: Report from Study
  Country: DE (occurrence: DE)
  Receive Date: 20131108
  Receipt Date: 20131108
  Transmission Date: 20140711
  Serious: Yes (Other)
  Sender: FDA-Public Use
  Company Number: DE-BAYER-2013-135998

PATIENT
  Sex: Female

DRUGS (2)
  1. BETAFERON [Suspect]
     Dosage: UNK
     Route: 058
  2. IBUPROFEN [Concomitant]
     Dosage: UNK

REACTIONS (2)
  - Liver function test abnormal [None]
  - Alanine aminotransferase increased [None]
